FAERS Safety Report 13845111 (Version 1)
Quarter: 2017Q3

REPORT INFORMATION
  Report Type: Spontaneous
  Country: CN (occurrence: CN)
  Receive Date: 20170808
  Receipt Date: 20170808
  Transmission Date: 20171127
  Serious: Yes (Other)
  Sender: FDA-Public Use
  Company Number: CN-ROCHE-1975490

PATIENT
  Age: 3 Year
  Sex: Female

DRUGS (3)
  1. ROCEPHIN [Suspect]
     Active Substance: CEFTRIAXONE SODIUM
     Indication: URETHRITIS NONINFECTIVE
     Route: 041
     Dates: start: 20170508, end: 20170508
  2. SODIUM CHLORIDE. [Concomitant]
     Active Substance: SODIUM CHLORIDE
     Route: 041
     Dates: start: 20170508, end: 20170508
  3. VITAMIN K1 [Concomitant]
     Active Substance: PHYTONADIONE
     Indication: URETHRITIS NONINFECTIVE
     Route: 041
     Dates: start: 20170508, end: 20170508

REACTIONS (2)
  - Vomiting [Recovering/Resolving]
  - Cyanosis [Recovering/Resolving]

NARRATIVE: CASE EVENT DATE: 20170508
